FAERS Safety Report 13423005 (Version 1)
Quarter: 2017Q2

REPORT INFORMATION
  Report Type: Report from Study
  Country: US (occurrence: US)
  Receive Date: 20170410
  Receipt Date: 20170410
  Transmission Date: 20170830
  Serious: Yes (Other)
  Sender: FDA-Public Use
  Company Number: US-GILEAD-2017-0265885

PATIENT
  Age: 35 Year
  Sex: Female

DRUGS (1)
  1. LEDIPASVIR/SOFOSBUVIR [Suspect]
     Active Substance: LEDIPASVIR\SOFOSBUVIR
     Indication: CHRONIC HEPATITIS C
     Dosage: 1 DF, QD
     Route: 048
     Dates: start: 20170213

REACTIONS (7)
  - Drug dose omission [Unknown]
  - Memory impairment [Not Recovered/Not Resolved]
  - Mental disorder [Unknown]
  - Daydreaming [Not Recovered/Not Resolved]
  - Depression [Unknown]
  - Bipolar disorder [Unknown]
  - Confusional state [Not Recovered/Not Resolved]

NARRATIVE: CASE EVENT DATE: 2017
